FAERS Safety Report 5549812-1 (Version None)
Quarter: 2007Q4

REPORT INFORMATION
  Report Type: 
  Country: None (occurrence: None)
  Receive Date: 20071210
  Receipt Date: 20071126
  Transmission Date: 20080405
  Serious: Yes (Other)
  Sender: FDA-Public Use
  Company Number: 021102

PATIENT
  Age: 27 Year
  Sex: Female
  Weight: 52.2 kg

DRUGS (2)
  1. CLARAVIS [Suspect]
     Dosage: 40 MG, QD, ORAL
     Route: 048
     Dates: start: 20061107, end: 20070523
  2. YASMIN [Concomitant]

REACTIONS (3)
  - BENIGN HYDATIDIFORM MOLE [None]
  - DRUG EXPOSURE DURING PREGNANCY [None]
  - UNINTENDED PREGNANCY [None]
